FAERS Safety Report 5373612-9 (Version None)
Quarter: 2007Q2

REPORT INFORMATION
  Report Type: 
  Country: None (occurrence: None)
  Receive Date: 20070626
  Receipt Date: 20060727
  Transmission Date: 20071010
  Serious: Yes (Other)
  Sender: FDA-Public Use
  Company Number: 446141

PATIENT
  Sex: Male

DRUGS (2)
  1. KLONOPIN [Suspect]
     Indication: CONVULSION
     Dosage: ORAL
     Route: 048
     Dates: start: 19960615, end: 20060228
  2. NEURONTIN [Suspect]
     Indication: CONVULSION

REACTIONS (3)
  - ANXIETY [None]
  - CONVULSION [None]
  - DYSKINESIA [None]
